FAERS Safety Report 24325781 (Version 2)
Quarter: 2024Q3

REPORT INFORMATION
  Report Type: Report from Study
  Country: CA (occurrence: CA)
  Receive Date: 20240917
  Receipt Date: 20240919
  Transmission Date: 20241016
  Serious: No
  Sender: ABBVIE
  Company Number: CA-ABBVIE-5923697

PATIENT
  Age: 33 Year
  Sex: Female

DRUGS (1)
  1. RINVOQ [Suspect]
     Active Substance: UPADACITINIB
     Indication: Rheumatoid arthritis
     Route: 048
     Dates: start: 20240228

REACTIONS (1)
  - Mastitis [Recovering/Resolving]

NARRATIVE: CASE EVENT DATE: 20240902
